FAERS Safety Report 7573285-0 (Version None)
Quarter: 2011Q2

REPORT INFORMATION
  Report Type: 
  Country: None (occurrence: None)
  Receive Date: 20110627
  Receipt Date: 20110614
  Transmission Date: 20111010
  Serious: Yes (Hospitalization)
  Sender: FDA-Public Use
  Company Number: PHHY2011US52975

PATIENT
  Sex: Female
  Weight: 50.794 kg

DRUGS (10)
  1. FOLATE SODIUM [Concomitant]
     Route: 048
  2. CARVEDILOL [Concomitant]
     Route: 048
  3. CIPRINOL [Concomitant]
  4. LISINOPRIL [Concomitant]
     Route: 048
  5. EXJADE [Suspect]
     Dosage: 1000 MG, QD
     Route: 048
  6. HEPARIN [Concomitant]
     Route: 058
  7. EXJADE [Suspect]
     Indication: SICKLE CELL ANAEMIA
     Dosage: 1000 MG, QD
     Route: 048
     Dates: start: 20060605
  8. CEFTRIAXONE [Concomitant]
     Route: 048
  9. COLACE [Concomitant]
     Route: 048
  10. CALCIUM CARBONATE [Concomitant]
     Route: 048

REACTIONS (2)
  - LYMPHADENOPATHY [None]
  - VASCULAR OCCLUSION [None]
